FAERS Safety Report 7343105-8 (Version None)
Quarter: 2011Q1

REPORT INFORMATION
  Report Type: 
  Country: None (occurrence: None)
  Receive Date: 20110310
  Receipt Date: 20110226
  Transmission Date: 20110831
  Serious: Yes (Hospitalization)
  Sender: FDA-Public Use
  Company Number: US-ELI_LILLY_AND_COMPANY-US201102007433

PATIENT
  Sex: Male

DRUGS (1)
  1. EFFIENT [Suspect]
     Dosage: UNK, UNK
     Dates: start: 20110131

REACTIONS (1)
  - CHEST PAIN [None]
